FAERS Safety Report 15789327 (Version 3)
Quarter: 2020Q4

REPORT INFORMATION
  Report Type: Report from Study
  Country: US (occurrence: US)
  Receive Date: 20190104
  Receipt Date: 20201016
  Transmission Date: 20210113
  Serious: Yes (Disabling, Other)
  Sender: FDA-Public Use
  Company Number: US-JNJFOC-20181235509

PATIENT
  Age: 67 Year
  Sex: Male

DRUGS (2)
  1. STELARA [Suspect]
     Active Substance: USTEKINUMAB
     Indication: CROHN^S DISEASE
     Dosage: INDUCTION DOSE (INTRAVENOUS)
     Route: 058
     Dates: start: 20181029
  2. STELARA [Suspect]
     Active Substance: USTEKINUMAB
     Dosage: MAINTENANCE DOSE (SUBCUTANEOUS)
     Route: 058
     Dates: start: 20181227

REACTIONS (2)
  - Pyoderma gangrenosum [Not Recovered/Not Resolved]
  - Colitis ulcerative [Not Recovered/Not Resolved]

NARRATIVE: CASE EVENT DATE: 2018
